FAERS Safety Report 21051208 (Version 1)
Quarter: 2022Q3

REPORT INFORMATION
  Report Type: Spontaneous
  Country: UG (occurrence: UG)
  Receive Date: 20220707
  Receipt Date: 20220707
  Transmission Date: 20221027
  Serious: Yes (Other)
  Sender: FDA-Public Use
  Company Number: UG-SUN PHARMACEUTICAL INDUSTRIES LTD-2022R1-342794

PATIENT
  Age: 25 Year
  Sex: Female

DRUGS (1)
  1. PREDNISONE [Suspect]
     Active Substance: PREDNISONE
     Indication: Thrombocytopenia
     Dosage: 60 MILLIGRAM, DAILY
     Route: 048

REACTIONS (1)
  - Therapy non-responder [Unknown]
